APPROVED DRUG PRODUCT: ESTRADURIN
Active Ingredient: POLYESTRADIOL PHOSPHATE
Strength: 40MG/AMP
Dosage Form/Route: INJECTABLE;INJECTION
Application: N010753 | Product #001
Applicant: WYETH AYERST LABORATORIES
Approved: Approved Prior to Jan 1, 1982 | RLD: No | RS: No | Type: DISCN